FAERS Safety Report 9316208 (Version 4)
Quarter: 2014Q2

REPORT INFORMATION
  Report Type: Report from Study
  Country: DE (occurrence: DE)
  Receive Date: 20130530
  Receipt Date: 20140422
  Transmission Date: 20141212
  Serious: Yes (Hospitalization)
  Sender: FDA-Public Use
  Company Number: PHHO2013DE006922

PATIENT
  Sex: 0

DRUGS (3)
  1. STI571 [Suspect]
     Indication: ACUTE LYMPHOCYTIC LEUKAEMIA
     Dosage: 400 MG, UNK
     Dates: start: 20130429, end: 20130521
  2. CICLOSPORIN [Suspect]
  3. VITAMIN B1 W/VITAMIN B6 [Suspect]

REACTIONS (1)
  - Encephalitis viral [Recovered/Resolved with Sequelae]
